FAERS Safety Report 12875487 (Version 1)
Quarter: 2016Q4

REPORT INFORMATION
  Report Type: Spontaneous
  Country: NL (occurrence: NL)
  Receive Date: 20161024
  Receipt Date: 20161024
  Transmission Date: 20170207
  Serious: Yes (Other)
  Sender: FDA-Public Use
  Company Number: NL-AUROBINDO-AUR-APL-2016-12998

PATIENT
  Age: 49 Year
  Sex: Female

DRUGS (1)
  1. PREDNISONE 5MG [Suspect]
     Active Substance: PREDNISONE
     Indication: SYSTEMIC LUPUS ERYTHEMATOSUS
     Dosage: 5 MG, UNK
     Route: 048

REACTIONS (3)
  - Histoplasmosis disseminated [Unknown]
  - Nasal ulcer [Unknown]
  - Skin ulcer [Unknown]
